FAERS Safety Report 15673751 (Version 1)
Quarter: 2018Q4

REPORT INFORMATION
  Report Type: Spontaneous
  Country: US (occurrence: US)
  Receive Date: 20181129
  Receipt Date: 20181129
  Transmission Date: 20190205
  Serious: Yes (Other)
  Sender: FDA-Public Use
  Company Number: US-PFIZER INC-2018431428

PATIENT
  Age: 70 Year
  Sex: Female

DRUGS (4)
  1. LYRICA [Suspect]
     Active Substance: PREGABALIN
     Dosage: 100 MG, DAILY
     Route: 048
  2. NORVASC [Suspect]
     Active Substance: AMLODIPINE BESYLATE
     Dosage: 10 MG, DAILY
     Route: 048
  3. TRAMADOL. [Suspect]
     Active Substance: TRAMADOL
     Dosage: UNK
  4. CELEBREX [Suspect]
     Active Substance: CELECOXIB
     Indication: OSTEOARTHRITIS
     Dosage: 200 MG, DAILY
     Route: 048

REACTIONS (57)
  - Haematochezia [Unknown]
  - Dyspnoea [Unknown]
  - Peripheral swelling [Unknown]
  - Diarrhoea [Unknown]
  - Haematuria [Unknown]
  - Dizziness [Unknown]
  - Drug ineffective [Unknown]
  - Loss of personal independence in daily activities [Unknown]
  - Gait disturbance [Unknown]
  - Constipation [Unknown]
  - Vomiting [Unknown]
  - Psoriasis [Unknown]
  - Heart rate irregular [Unknown]
  - Pyrexia [Unknown]
  - Weight decreased [Unknown]
  - Vision blurred [Unknown]
  - Diplopia [Unknown]
  - Cough [Unknown]
  - Chest pain [Unknown]
  - Urticaria [Unknown]
  - Blindness [Unknown]
  - Chills [Unknown]
  - Dry eye [Unknown]
  - Dysphagia [Unknown]
  - Nausea [Unknown]
  - Genital lesion [Unknown]
  - Nail disorder [Unknown]
  - Myalgia [Unknown]
  - Increased tendency to bruise [Unknown]
  - Seizure [Unknown]
  - Insomnia [Unknown]
  - Dyspepsia [Unknown]
  - Headache [Unknown]
  - Paraesthesia [Unknown]
  - Depression suicidal [Unknown]
  - Back pain [Unknown]
  - Weight increased [Unknown]
  - Dry mouth [Unknown]
  - Dysuria [Unknown]
  - Hypoaesthesia [Unknown]
  - Rash [Unknown]
  - Joint swelling [Unknown]
  - Muscular weakness [Unknown]
  - Haemorrhagic diathesis [Unknown]
  - Night sweats [Unknown]
  - Abdominal pain [Unknown]
  - Arthralgia [Unknown]
  - Musculoskeletal pain [Unknown]
  - Fatigue [Unknown]
  - Painful respiration [Unknown]
  - Wheezing [Unknown]
  - Urinary incontinence [Unknown]
  - Anxiety [Unknown]
  - Photosensitivity reaction [Unknown]
  - Muscle spasms [Unknown]
  - Neck pain [Unknown]
  - Lymphadenopathy [Unknown]
